FAERS Safety Report 5414957-3 (Version None)
Quarter: 2007Q3

REPORT INFORMATION
  Report Type: 
  Country: None (occurrence: None)
  Receive Date: 20070815
  Receipt Date: 20070802
  Transmission Date: 20080115
  Serious: Yes (Other)
  Sender: FDA-Public Use
  Company Number: CS-JNJFOC-20070801792

PATIENT

DRUGS (1)
  1. TOPAMAX [Suspect]
     Indication: MYOCLONIC EPILEPSY

REACTIONS (1)
  - STATUS EPILEPTICUS [None]
